FAERS Safety Report 5257773-8 (Version None)
Quarter: 2007Q1

REPORT INFORMATION
  Report Type: 
  Country: None (occurrence: None)
  Receive Date: 20070307
  Receipt Date: 20070221
  Transmission Date: 20070707
  Serious: Yes (Other)
  Sender: FDA-Public Use
  Company Number: GB-JNJFOC-20070206101

PATIENT
  Age: 58 Year
  Sex: Male

DRUGS (3)
  1. TRAMADOL HCL [Suspect]
     Indication: ARTHRALGIA
     Route: 048
  2. CO-CODAMOL [Concomitant]
     Indication: ARTHRALGIA
     Route: 048
  3. NAPROXEN [Concomitant]
     Indication: ARTHRALGIA
     Route: 048

REACTIONS (3)
  - CHEST DISCOMFORT [None]
  - DRUG WITHDRAWAL SYNDROME [None]
  - INFLUENZA LIKE ILLNESS [None]
